FAERS Safety Report 5535128-6 (Version None)
Quarter: 2007Q4

REPORT INFORMATION
  Report Type: 
  Country: None (occurrence: None)
  Receive Date: 20071203
  Receipt Date: 20071120
  Transmission Date: 20080405
  Serious: Yes (Disabling)
  Sender: FDA-Public Use
  Company Number: 100#03#2007-04917

PATIENT
  Age: 71 Year
  Sex: Male

DRUGS (3)
  1. CIPROFLOXACIN [Suspect]
     Indication: ARTHRITIS BACTERIAL
     Dosage: 750 MG TWICE DAILY, ORAL
     Route: 048
     Dates: start: 20050203, end: 20050530
  2. FLOXACILLIN SODIUM [Concomitant]
  3. ZOPICLONE                                               (ZOPICLONE) [Concomitant]

REACTIONS (1)
  - ORAL PAIN [None]
